FAERS Safety Report 8430209-1 (Version None)
Quarter: 2012Q2

REPORT INFORMATION
  Report Type: 
  Country: None (occurrence: None)
  Receive Date: 20120323
  Receipt Date: 20110824
  Transmission Date: 20120825
  Serious: Yes (Other)
  Sender: FDA-Public Use
  Company Number: 163-21880-11083106

PATIENT
  Age: 58 Year
  Sex: Female

DRUGS (3)
  1. PREVACID [Concomitant]
  2. REVLIMID [Suspect]
     Indication: MULTIPLE MYELOMA
     Dosage: 25 MG, QD X 21 DAYS OFF 7 DAYS, PO
     Route: 048
     Dates: start: 20110808
  3. VICODIN [Concomitant]

REACTIONS (2)
  - HERPES ZOSTER [None]
  - RIB FRACTURE [None]
